FAERS Safety Report 8544898-4 (Version None)
Quarter: 2012Q3

REPORT INFORMATION
  Report Type: 
  Country: None (occurrence: None)
  Receive Date: 20120727
  Receipt Date: 20120719
  Transmission Date: 20120928
  Serious: Yes (Other)
  Sender: FDA-Public Use
  Company Number: IE-BRISTOL-MYERS SQUIBB COMPANY-16712523

PATIENT

DRUGS (1)
  1. ABATACEPT [Suspect]

REACTIONS (3)
  - CERVICAL VERTEBRAL FRACTURE [None]
  - FALL [None]
  - QUADRIPLEGIA [None]
